FAERS Safety Report 5715924-2 (Version None)
Quarter: 2008Q2

REPORT INFORMATION
  Report Type: 
  Country: None (occurrence: None)
  Receive Date: 20080424
  Receipt Date: 20080410
  Transmission Date: 20081010
  Serious: Yes (Hospitalization)
  Sender: FDA-Public Use
  Company Number: DE-ELI_LILLY_AND_COMPANY-DE200804005681

PATIENT
  Sex: Male

DRUGS (1)
  1. ZYPREXA [Suspect]
     Route: 048

REACTIONS (3)
  - INTESTINAL STRANGULATION [None]
  - PERITONEAL ADHESIONS [None]
  - PERITONITIS [None]
